FAERS Safety Report 17676769 (Version 1)
Quarter: 2020Q2

REPORT INFORMATION
  Report Type: Spontaneous
  Country: US (occurrence: US)
  Receive Date: 20200416
  Receipt Date: 20200416
  Transmission Date: 20200714
  Serious: No
  Sender: FDA-Public Use
  Company Number: US-CADILA HEALTHCARE LIMITED-US-ZYDUS-038938

PATIENT

DRUGS (2)
  1. DOXYCYCLINE. [Suspect]
     Active Substance: DOXYCYCLINE
     Indication: SKIN LACERATION
     Dosage: 100 MILLIGRAM,FREQUENCY :TWICE DAILY
     Route: 048
     Dates: start: 20181127, end: 20181129
  2. ROXICODONE [Concomitant]
     Active Substance: OXYCODONE HYDROCHLORIDE
     Indication: PAIN IN EXTREMITY
     Dosage: 30 MILLIGRAM,FREQUENCY :FOUR TIMES PER DAY
     Route: 065

REACTIONS (12)
  - Hallucination, auditory [Not Recovered/Not Resolved]
  - Anxiety [Not Recovered/Not Resolved]
  - Product use in unapproved indication [Recovered/Resolved]
  - Dyspnoea [Not Recovered/Not Resolved]
  - Cardiac flutter [Not Recovered/Not Resolved]
  - Depressed mood [Not Recovered/Not Resolved]
  - Renal pain [Not Recovered/Not Resolved]
  - Somnolence [Recovered/Resolved]
  - Chest discomfort [Not Recovered/Not Resolved]
  - Palpitations [Not Recovered/Not Resolved]
  - Hypersomnia [Recovered/Resolved]
  - Cardiac disorder [Not Recovered/Not Resolved]

NARRATIVE: CASE EVENT DATE: 20181127
